FAERS Safety Report 7604842-0 (Version None)
Quarter: 2011Q3

REPORT INFORMATION
  Report Type: 
  Country: None (occurrence: None)
  Receive Date: 20110712
  Receipt Date: 20110706
  Transmission Date: 20111222
  Serious: Yes (Hospitalization)
  Sender: FDA-Public Use
  Company Number: FR-MERCK-1105USA03439

PATIENT
  Age: 33 Year
  Sex: Female

DRUGS (5)
  1. GLUCOPHAGE [Suspect]
     Route: 048
     Dates: end: 20100924
  2. JANUMET [Suspect]
     Route: 048
     Dates: start: 20100924, end: 20110408
  3. ACETAMINOPHEN [Concomitant]
     Route: 065
  4. JANUVIA [Suspect]
     Route: 048
     Dates: start: 20100917, end: 20100923
  5. LUDEAL [Concomitant]
     Route: 048

REACTIONS (3)
  - THROMBOTIC THROMBOCYTOPENIC PURPURA [None]
  - HAEMOLYTIC ANAEMIA [None]
  - THROMBOTIC MICROANGIOPATHY [None]
